FAERS Safety Report 15389993 (Version 1)
Quarter: 2018Q3

REPORT INFORMATION
  Report Type: Spontaneous
  Country: US (occurrence: US)
  Receive Date: 20180917
  Receipt Date: 20180917
  Transmission Date: 20181010
  Serious: Yes (Other)
  Sender: FDA-Public Use
  Company Number: US-ABBVIE-18K-163-2484850-00

PATIENT
  Sex: Male

DRUGS (1)
  1. MAVYRET [Suspect]
     Active Substance: GLECAPREVIR\PIBRENTASVIR
     Indication: CHRONIC HEPATITIS C
     Route: 048
     Dates: start: 201808, end: 20180913

REACTIONS (5)
  - Blood bilirubin increased [Not Recovered/Not Resolved]
  - Platelet count decreased [Not Recovered/Not Resolved]
  - Cataract [Unknown]
  - Bilirubin conjugated increased [Not Recovered/Not Resolved]
  - Aspartate aminotransferase increased [Not Recovered/Not Resolved]

NARRATIVE: CASE EVENT DATE: 2018
